FAERS Safety Report 7731400-X (Version None)
Quarter: 2011Q3

REPORT INFORMATION
  Report Type: 
  Country: None (occurrence: None)
  Receive Date: 20110906
  Receipt Date: 20110901
  Transmission Date: 20111222
  Serious: Yes (Other)
  Sender: FDA-Public Use
  Company Number: SE-PFIZER INC-2011171818

PATIENT
  Age: 75 Year
  Sex: Male
  Weight: 120 kg

DRUGS (9)
  1. WARFARIN SODIUM [Concomitant]
     Dosage: 2 TABLETS FOR 5 DAYS AND THREE TABLETS FOR 2 DAYS EACH WEEK
  2. LEVEMIR [Concomitant]
     Dosage: UNK
  3. BISOPROLOL FUMARATE [Suspect]
     Indication: CARDIAC FIBRILLATION
     Dosage: 5 MG, 3X/DAY
  4. POTASSIUM CHLORIDE [Concomitant]
     Dosage: 750 MG, 1X/DAY
     Dates: start: 20110622
  5. ACTRAPID [Concomitant]
     Dosage: UNK
  6. ALDACTONE [Suspect]
     Indication: CARDIAC FAILURE
     Dosage: 25 MG, 1X/DAY
     Dates: start: 20110622
  7. POTASSIUM CHLORIDE [Concomitant]
     Dosage: 750 MG, 2X/DAY
  8. RAMIPRIL [Suspect]
     Indication: HYPERTENSION
     Dosage: 5 MG, 2X/DAY
     Dates: start: 20010101
  9. FUROSEMIDE [Suspect]
     Indication: CARDIAC FAILURE
     Dosage: 40 MG, 3X/DAY
     Dates: start: 20060101

REACTIONS (1)
  - HYPERGLYCAEMIA [None]
